FAERS Safety Report 20694876 (Version 1)
Quarter: 2022Q2

REPORT INFORMATION
  Report Type: Spontaneous
  Country: FR (occurrence: FR)
  Receive Date: 20220411
  Receipt Date: 20220411
  Transmission Date: 20220721
  Serious: Yes (Hospitalization)
  Sender: FDA-Public Use
  Company Number: FR-NOVARTISPH-NVSC2022FR076304

PATIENT
  Sex: Female

DRUGS (4)
  1. IBUPROFEN [Interacting]
     Active Substance: IBUPROFEN
     Indication: Back pain
     Dosage: UNK
     Route: 048
  2. IBUPROFEN [Interacting]
     Active Substance: IBUPROFEN
     Indication: Sciatica
  3. ACETAMINOPHEN [Suspect]
     Active Substance: ACETAMINOPHEN
     Indication: Back pain
     Dosage: 1 G EVERY 6 HOURS TID
     Route: 065
  4. ACETAMINOPHEN [Suspect]
     Active Substance: ACETAMINOPHEN
     Indication: Sciatica

REACTIONS (5)
  - Sciatica [Recovering/Resolving]
  - Bedridden [Unknown]
  - Haemorrhoidal haemorrhage [Recovered/Resolved]
  - Constipation [Unknown]
  - Drug ineffective [Unknown]
